FAERS Safety Report 7117290-7 (Version None)
Quarter: 2010Q4

REPORT INFORMATION
  Report Type: 
  Country: None (occurrence: None)
  Receive Date: 20101122
  Receipt Date: 20101115
  Transmission Date: 20110411
  Serious: Yes (Hospitalization)
  Sender: FDA-Public Use
  Company Number: US-CEPHALON-2010005940

PATIENT
  Sex: Female

DRUGS (10)
  1. PROVIGIL [Suspect]
     Indication: SEDATION
     Route: 048
     Dates: start: 20061012
  2. LEVOTHYROXINE SODIUM [Concomitant]
  3. LANSOPRAZOLE [Concomitant]
  4. PHOSPHA [Concomitant]
  5. KEPPRA [Concomitant]
     Indication: CONVULSION
  6. TRILEPTAL [Concomitant]
     Indication: CONVULSION
  7. TOPAMAX [Concomitant]
     Indication: CONVULSION
  8. NEURONTIN [Concomitant]
  9. CALCIUM CARBONATE [Concomitant]
  10. METOCLOPRAMIDE [Concomitant]

REACTIONS (3)
  - DEPRESSED LEVEL OF CONSCIOUSNESS [None]
  - DRUG INEFFECTIVE FOR UNAPPROVED INDICATION [None]
  - DRUG PRESCRIBING ERROR [None]
